FAERS Safety Report 7995268-9 (Version None)
Quarter: 2011Q4

REPORT INFORMATION
  Report Type: 
  Country: None (occurrence: None)
  Receive Date: 20111220
  Receipt Date: 20111220
  Transmission Date: 20120403
  Serious: Yes (Death, Life-Threatening, Hospitalization)
  Sender: FDA-Public Use
  Company Number: None

PATIENT
  Sex: Female
  Weight: 58.967 kg

DRUGS (1)
  1. AZATHIOPRINE [Suspect]
     Indication: COLITIS ULCERATIVE
     Dosage: 50 MGS.
     Route: 048
     Dates: start: 20100914, end: 20110214

REACTIONS (6)
  - URINARY TRACT INFECTION [None]
  - PHARYNGITIS STREPTOCOCCAL [None]
  - MYALGIA [None]
  - DRUG HYPERSENSITIVITY [None]
  - ARTHRALGIA [None]
  - VAGINAL HAEMORRHAGE [None]
